FAERS Safety Report 5330508-6 (Version None)
Quarter: 2007Q2

REPORT INFORMATION
  Report Type: 
  Country: None (occurrence: None)
  Receive Date: 20070521
  Receipt Date: 20070510
  Transmission Date: 20071010
  Serious: Yes (Other)
  Sender: FDA-Public Use
  Company Number: US-PFIZER INC-2007039277

PATIENT
  Sex: Male
  Weight: 70.454 kg

DRUGS (3)
  1. CHANTIX [Suspect]
     Indication: SMOKING CESSATION THERAPY
     Dates: start: 20070401, end: 20070507
  2. TUMS [Concomitant]
     Dosage: FREQ:OCCASIONALLY
  3. PROTONIX [Concomitant]
     Dosage: FREQ:EVERY OTHER DAY

REACTIONS (7)
  - ASTHENIA [None]
  - DEHYDRATION [None]
  - DIZZINESS [None]
  - FEELING JITTERY [None]
  - FLUSHING [None]
  - HEADACHE [None]
  - TOBACCO WITHDRAWAL SYMPTOMS [None]
